FAERS Safety Report 25218025 (Version 1)
Quarter: 2025Q2

REPORT INFORMATION
  Report Type: Spontaneous
  Country: FR (occurrence: FR)
  Receive Date: 20250421
  Receipt Date: 20250421
  Transmission Date: 20250716
  Serious: Yes (Life-Threatening, Other)
  Sender: ENDO
  Company Number: FR-ENDO USA, INC.-2025-001058

PATIENT

DRUGS (2)
  1. KETALAR [Suspect]
     Active Substance: KETAMINE HYDROCHLORIDE
     Indication: Analgesic therapy
     Route: 065
  2. KETALAR [Suspect]
     Active Substance: KETAMINE HYDROCHLORIDE
     Indication: Sedative therapy

REACTIONS (3)
  - Cholangitis sclerosing [Unknown]
  - Liver transplant [Recovered/Resolved]
  - Off label use [Recovered/Resolved]
